FAERS Safety Report 5635534-5 (Version None)
Quarter: 2008Q1

REPORT INFORMATION
  Report Type: 
  Country: None (occurrence: None)
  Receive Date: 20080222
  Receipt Date: 20080211
  Transmission Date: 20080703
  Serious: Yes (Other)
  Sender: FDA-Public Use
  Company Number: US-ELI_LILLY_AND_COMPANY-US200802002242

PATIENT
  Sex: Female

DRUGS (1)
  1. FORTEO [Suspect]

REACTIONS (6)
  - ARTHRALGIA [None]
  - FATIGUE [None]
  - LIMB DISCOMFORT [None]
  - MYALGIA [None]
  - SOMNOLENCE [None]
  - SPINAL FRACTURE [None]
